FAERS Safety Report 23597284 (Version 1)
Quarter: 2024Q1

REPORT INFORMATION
  Report Type: Spontaneous
  Country: US (occurrence: US)
  Receive Date: 20240305
  Receipt Date: 20240305
  Transmission Date: 20240410
  Serious: No
  Sender: FDA-Public Use
  Company Number: US-VERTEX PHARMACEUTICALS-2024-003306

PATIENT
  Sex: Female

DRUGS (1)
  1. ELEXACAFTOR\IVACAFTOR\TEZACAFTOR [Suspect]
     Active Substance: ELEXACAFTOR\IVACAFTOR\TEZACAFTOR
     Indication: Cystic fibrosis
     Dosage: UNKWOWN DOSAGE REGIMEN
     Route: 048

REACTIONS (6)
  - Mood altered [Unknown]
  - Fatigue [Unknown]
  - Chest discomfort [Unknown]
  - Diabetes mellitus [Unknown]
  - Exposure during pregnancy [Unknown]
  - Abdominal distension [Unknown]
